FAERS Safety Report 24248392 (Version 1)
Quarter: 2024Q3

REPORT INFORMATION
  Report Type: Spontaneous
  Country: AR (occurrence: AR)
  Receive Date: 20240826
  Receipt Date: 20240826
  Transmission Date: 20241017
  Serious: Yes (Hospitalization, Other)
  Sender: MACLEODS
  Company Number: AR-MACLEODS PHARMA-MAC2024048928

PATIENT

DRUGS (1)
  1. METHIMAZOLE [Suspect]
     Active Substance: METHIMAZOLE
     Indication: Graves^ disease
     Route: 065

REACTIONS (3)
  - Myelosuppression [Recovered/Resolved]
  - Plasmacytosis [Recovered/Resolved]
  - Pancytopenia [Recovered/Resolved]
